FAERS Safety Report 5818577-8 (Version None)
Quarter: 2008Q3

REPORT INFORMATION
  Report Type: 
  Country: None (occurrence: None)
  Receive Date: 20080717
  Receipt Date: 20080710
  Transmission Date: 20090109
  Serious: Yes (Life-Threatening, Hospitalization)
  Sender: FDA-Public Use
  Company Number: 163-21880-08031702

PATIENT
  Age: 51 Year
  Sex: Male

DRUGS (2)
  1. REVLIMID [Suspect]
     Indication: MULTIPLE MYELOMA
     Dosage: 25 MG, DAILY 21 DAYS OUT OF 28 DAYS, ORAL
     Route: 048
     Dates: start: 20080205, end: 20080217
  2. DIOVOL (DIOVOL) [Concomitant]

REACTIONS (9)
  - BLOOD CALCIUM DECREASED [None]
  - CHRONIC HEPATITIS [None]
  - DEHYDRATION [None]
  - HEPATIC ENZYME INCREASED [None]
  - HYPOCALCAEMIA [None]
  - HYPOTENSION [None]
  - LIVER INJURY [None]
  - RASH [None]
  - RENAL FAILURE ACUTE [None]
